FAERS Safety Report 8605678-4 (Version None)
Quarter: 2012Q3

REPORT INFORMATION
  Report Type: 
  Country: None (occurrence: None)
  Receive Date: 20120820
  Receipt Date: 20120807
  Transmission Date: 20120928
  Serious: Yes (Hospitalization, Other)
  Sender: FDA-Public Use
  Company Number: CH-ROCHE-1010744

PATIENT
  Sex: Female
  Weight: 77 kg

DRUGS (10)
  1. EXCIPIAL U LIPOLOTION [Concomitant]
     Indication: DRY SKIN
     Dates: start: 20110803, end: 20111011
  2. PEGASYS [Suspect]
     Indication: HEPATITIS C
     Dates: start: 20110720, end: 20111011
  3. LERCANIDIPINE [Concomitant]
     Indication: HYPERTENSION
     Route: 048
     Dates: end: 20111011
  4. BLINDED BI 201335 [Suspect]
     Indication: HEPATITIS C
     Route: 048
     Dates: start: 20110720, end: 20111011
  5. LOSARTAN POTASSIUM [Concomitant]
     Indication: HYPERTENSION
     Dosage: STRENGTH: 10 MG/25 MG
     Dates: end: 20111011
  6. NEBIVOLOL HCL [Concomitant]
     Indication: HYPERTENSION
     Route: 048
     Dates: end: 20111011
  7. DEPAKENE [Concomitant]
     Indication: EPILEPSY
     Route: 048
  8. SUN BATH PROTECTIVE TANNING LOTION [Concomitant]
     Indication: RASH
     Dosage: DRUG NAME REPORTED AS: SUNSCREEN
     Dates: start: 20110720, end: 20111011
  9. COPEGUS [Suspect]
     Indication: HEPATITIS C
     Route: 048
     Dates: start: 20110720, end: 20111011
  10. SUN BATH PROTECTIVE TANNING LOTION [Concomitant]
     Indication: PHOTOSENSITIVITY REACTION

REACTIONS (5)
  - ANAEMIA [None]
  - THROMBOCYTOPENIA [None]
  - ASTHENIA [None]
  - HYPOTENSION [None]
  - LEUKOPENIA [None]
